FAERS Safety Report 14691217 (Version 3)
Quarter: 2018Q3

REPORT INFORMATION
  Report Type: Report from Study
  Country: US (occurrence: US)
  Receive Date: 20180328
  Receipt Date: 20180704
  Transmission Date: 20181010
  Serious: Yes (Hospitalization, Other)
  Sender: FDA-Public Use
  Company Number: US-BRISTOL-MYERS SQUIBB COMPANY-BMS-2018-011316

PATIENT
  Age: 35 Year
  Sex: Female
  Weight: 106.85 kg

DRUGS (2)
  1. NIVOLUMAB [Suspect]
     Active Substance: NIVOLUMAB
     Indication: HODGKIN^S DISEASE
     Dosage: UNK
     Route: 065
     Dates: start: 20170716, end: 20170915
  2. NIVOLUMAB [Suspect]
     Active Substance: NIVOLUMAB
     Indication: PRODUCT USED FOR UNKNOWN INDICATION
     Dosage: UNK
     Route: 065
     Dates: start: 20171201, end: 20171227

REACTIONS (15)
  - Sepsis [Recovering/Resolving]
  - Hypomagnesaemia [Recovered/Resolved]
  - Diarrhoea [Recovered/Resolved]
  - Abdominal pain [Recovered/Resolved]
  - Hypokalaemia [Recovered/Resolved]
  - Alanine aminotransferase increased [Recovered/Resolved]
  - Malignant neoplasm progression [Unknown]
  - Hypocalcaemia [Recovered/Resolved]
  - Lymphocyte count decreased [Recovered/Resolved]
  - Hypoalbuminaemia [Recovered/Resolved]
  - Pneumonia [Unknown]
  - Upper respiratory tract infection [Recovered/Resolved]
  - Insomnia [Recovering/Resolving]
  - Vertigo [Recovering/Resolving]
  - Anaemia [Recovered/Resolved]

NARRATIVE: CASE EVENT DATE: 20170721
